FAERS Safety Report 5046725-9 (Version None)
Quarter: 2006Q2

REPORT INFORMATION
  Report Type: 
  Country: None (occurrence: None)
  Receive Date: 20060601
  Receipt Date: 20060314
  Transmission Date: 20061013
  Serious: No
  Sender: FDA-Public Use
  Company Number: 2006PV010238

PATIENT
  Age: 49 Year
  Sex: Female
  Weight: 114.76 kg

DRUGS (8)
  1. BYETTA [Suspect]
     Indication: DIABETES MELLITUS NON-INSULIN-DEPENDENT
     Dosage: 5 MCG;BID;SC
     Route: 058
     Dates: start: 20060131
  2. GLUCOVANCE [Concomitant]
  3. NEXIUM [Concomitant]
  4. PLAVIX [Concomitant]
  5. ATENOLOL [Concomitant]
  6. ISOSORBIDE DINITRATE [Concomitant]
  7. LYRICA [Concomitant]
  8. ASPIRIN [Concomitant]

REACTIONS (3)
  - DECREASED APPETITE [None]
  - LIBIDO DECREASED [None]
  - WEIGHT DECREASED [None]
